FAERS Safety Report 25504263 (Version 2)
Quarter: 2025Q3

REPORT INFORMATION
  Report Type: Other
  Country: US (occurrence: US)
  Receive Date: 20250702
  Receipt Date: 20250706
  Transmission Date: 20251020
  Serious: No
  Sender: TRAVERE THERAPEUTICS
  Company Number: US-TRAVERE-2025TVT00899

PATIENT
  Age: 54 Year
  Sex: Female

DRUGS (1)
  1. FILSPARI [Suspect]
     Active Substance: SPARSENTAN
     Indication: IgA nephropathy
     Route: 048

REACTIONS (6)
  - Hypotension [Unknown]
  - Heart rate increased [Unknown]
  - Chest discomfort [Unknown]
  - Feeling hot [Unknown]
  - Diarrhoea [None]
  - Dizziness postural [Unknown]

NARRATIVE: CASE EVENT DATE: 20250613
